FAERS Safety Report 24164130 (Version 3)
Quarter: 2025Q3

REPORT INFORMATION
  Report Type: Report from Study
  Country: US (occurrence: US)
  Receive Date: 20240801
  Receipt Date: 20250802
  Transmission Date: 20251021
  Serious: Yes (Hospitalization)
  Sender: ALEXION PHARMACEUTICALS
  Company Number: 2024A169797

PATIENT
  Sex: Female
  Weight: 104.33 kg

DRUGS (3)
  1. OMEPRAZOLE [Suspect]
     Active Substance: OMEPRAZOLE
  2. TEZSPIRE [Suspect]
     Active Substance: TEZEPELUMAB-EKKO
     Indication: Asthma
     Dosage: 210 UNK, Q4W
     Dates: start: 20230623
  3. TEZSPIRE [Suspect]
     Active Substance: TEZEPELUMAB-EKKO

REACTIONS (14)
  - COVID-19 [Unknown]
  - Asthma [Recovering/Resolving]
  - Pulmonary pain [Unknown]
  - Dyspnoea exertional [Unknown]
  - Cough [Unknown]
  - Snoring [Unknown]
  - Seasonal allergy [Unknown]
  - Oropharyngeal pain [Unknown]
  - Anxiety [Unknown]
  - Epistaxis [Unknown]
  - Wheezing [Unknown]
  - Chest discomfort [Unknown]
  - Sleep apnoea syndrome [Unknown]
  - Drug ineffective [Unknown]
